FAERS Safety Report 10012879 (Version 1)
Quarter: 2014Q1

REPORT INFORMATION
  Report Type: Spontaneous
  Country: GB (occurrence: GB)
  Receive Date: 20140314
  Receipt Date: 20140314
  Transmission Date: 20141002
  Serious: Yes (Other)
  Sender: FDA-Public Use
  Company Number: GB-PFIZER INC-2014074149

PATIENT
  Age: 39 Year
  Sex: Female
  Weight: 96 kg

DRUGS (6)
  1. DOSTINEX [Suspect]
     Indication: PITUITARY TUMOUR BENIGN
     Dosage: 750 UG, 2X/WEEK
     Route: 048
     Dates: start: 201208
  2. CETIRIZINE [Concomitant]
  3. FERROUS SULPHATE [Concomitant]
  4. PARACETAMOL [Concomitant]
  5. VALOID ORAL [Concomitant]
  6. COD LIVER OIL [Concomitant]

REACTIONS (2)
  - Skin hypopigmentation [Not Recovered/Not Resolved]
  - Skin discolouration [Not Recovered/Not Resolved]
